FAERS Safety Report 9931839 (Version 1)
Quarter: 2014Q1

REPORT INFORMATION
  Report Type: Spontaneous
  Country: JP (occurrence: None)
  Receive Date: 20140226
  Receipt Date: 20140226
  Transmission Date: 20141002
  Serious: Yes (Death, Hospitalization)
  Sender: FDA-Public Use
  Company Number: DSJ-2014-00169

PATIENT
  Age: 81 Year
  Sex: Male
  Weight: 57 kg

DRUGS (3)
  1. OLMETEC [Suspect]
     Indication: CARDIAC FAILURE
     Route: 048
     Dates: start: 20131216, end: 20140103
  2. URIEF [Suspect]
     Indication: DYSURIA
     Dosage: 4 MG 2 IN 1 D
     Route: 048
     Dates: start: 20131218, end: 20140103
  3. NEXIUM [Suspect]
     Indication: PROPHYLAXIS
     Route: 048
     Dates: start: 20131203, end: 20140103

REACTIONS (1)
  - Renal failure [None]
